FAERS Safety Report 18929978 (Version 1)
Quarter: 2021Q1

REPORT INFORMATION
  Report Type: Spontaneous
  Country: FR (occurrence: FR)
  Receive Date: 20210223
  Receipt Date: 20210223
  Transmission Date: 20210420
  Serious: Yes (Hospitalization)
  Sender: FDA-Public Use
  Company Number: NVSC2021FR035582

PATIENT
  Age: 72 Year
  Sex: Male
  Weight: 69 kg

DRUGS (13)
  1. ALLOPURINOL. [Concomitant]
     Active Substance: ALLOPURINOL
     Indication: PRODUCT USED FOR UNKNOWN INDICATION
     Dosage: UNK (VOIR COMMENTAIR)
     Route: 065
  2. ENALAPRIL MALEATE. [Concomitant]
     Active Substance: ENALAPRIL MALEATE
     Indication: PRODUCT USED FOR UNKNOWN INDICATION
     Dosage: UNK
     Route: 065
  3. BISOPROLOL FUMERATE [Concomitant]
     Active Substance: BISOPROLOL FUMARATE
     Indication: PRODUCT USED FOR UNKNOWN INDICATION
     Dosage: UNK (VOIR COMMENTAIR)
     Route: 048
  4. ZOPHREN [Suspect]
     Active Substance: ONDANSETRON
     Indication: ADENOCARCINOMA
     Dosage: 1 DF,QD
     Route: 048
     Dates: start: 20201201, end: 20201230
  5. SPIRONOLACTONE. [Concomitant]
     Active Substance: SPIRONOLACTONE
     Indication: PRODUCT USED FOR UNKNOWN INDICATION
     Dosage: UNK (VOIR COMMENTAIR)
     Route: 048
  6. SOLU?MEDROL [Concomitant]
     Active Substance: METHYLPREDNISOLONE SODIUM SUCCINATE
     Indication: ADENOCARCINOMA
     Dosage: UNK (VOIR COMMENTAIR)
     Route: 048
     Dates: start: 20201201, end: 20201230
  7. ROSUVASTATINE [Concomitant]
     Active Substance: ROSUVASTATIN
     Indication: PRODUCT USED FOR UNKNOWN INDICATION
     Dosage: UNK (VOIR COMMENTAIR)
     Route: 048
  8. PLAVIX [Concomitant]
     Active Substance: CLOPIDOGREL BISULFATE
     Indication: PRODUCT USED FOR UNKNOWN INDICATION
     Dosage: UNK
     Route: 048
  9. CARBOPLATINE [Suspect]
     Active Substance: CARBOPLATIN
     Indication: ADENOCARCINOMA
     Dosage: UNK (VOIR COMMENTAIR)
     Route: 042
     Dates: start: 20201201, end: 20201201
  10. ALIMTA [Suspect]
     Active Substance: PEMETREXED DISODIUM
     Indication: ADENOCARCINOMA
     Dosage: UNK (VOIR COMMENTAIR)
     Route: 042
     Dates: start: 20201201, end: 20201230
  11. KEYTRUDA [Suspect]
     Active Substance: PEMBROLIZUMAB
     Indication: ADENOCARCINOMA
     Dosage: UNK (VOIR COMMENTAIR)
     Route: 042
     Dates: start: 20201201, end: 20201230
  12. ACIDE FOLIQUE [Concomitant]
     Active Substance: FOLIC ACID
     Indication: ADENOCARCINOMA
     Dosage: UNK (VOIR COMMENTAIR)
     Route: 048
     Dates: start: 20201020
  13. FUROSEMIDE. [Concomitant]
     Active Substance: FUROSEMIDE
     Indication: PRODUCT USED FOR UNKNOWN INDICATION
     Dosage: UNK (VOIR COMMENTAIR)
     Route: 048

REACTIONS (1)
  - Toxic epidermal necrolysis [Recovering/Resolving]

NARRATIVE: CASE EVENT DATE: 20201203
